FAERS Safety Report 26138697 (Version 1)
Quarter: 2025Q4

REPORT INFORMATION
  Report Type: Spontaneous
  Country: EU (occurrence: EU)
  Receive Date: 20251210
  Receipt Date: 20251210
  Transmission Date: 20260118
  Serious: Yes (Other)
  Sender: AUROBINDO
  Company Number: EU-AUROBINDO-AUR-APL-2025-054079

PATIENT
  Age: 70 Year
  Sex: Male

DRUGS (21)
  1. PREGABALIN [Interacting]
     Active Substance: PREGABALIN
     Indication: Pain
     Dosage: 75 MILLIGRAM, ONCE A DAY
     Route: 065
  2. PREGABALIN [Interacting]
     Active Substance: PREGABALIN
     Indication: Phantom limb syndrome
  3. PREGABALIN [Interacting]
     Active Substance: PREGABALIN
     Indication: Insomnia
  4. PREGABALIN [Interacting]
     Active Substance: PREGABALIN
     Indication: Limb amputation
  5. BUPRENORPHINE [Interacting]
     Active Substance: BUPRENORPHINE
     Indication: Pain
     Dosage: 35UG/H/72 HOURS
  6. BUPRENORPHINE [Interacting]
     Active Substance: BUPRENORPHINE
     Indication: Phantom limb syndrome
  7. BUPRENORPHINE [Interacting]
     Active Substance: BUPRENORPHINE
     Indication: Insomnia
  8. BUPRENORPHINE [Interacting]
     Active Substance: BUPRENORPHINE
     Indication: Limb amputation
  9. HYDROXYZINE [Interacting]
     Active Substance: HYDROXYZINE HYDROCHLORIDE
     Indication: Pain
     Dosage: 50 MILLIGRAM,FOR THE NIGHT
     Route: 065
  10. HYDROXYZINE [Interacting]
     Active Substance: HYDROXYZINE HYDROCHLORIDE
     Indication: Phantom limb syndrome
  11. HYDROXYZINE [Interacting]
     Active Substance: HYDROXYZINE HYDROCHLORIDE
     Indication: Insomnia
  12. HYDROXYZINE [Interacting]
     Active Substance: HYDROXYZINE HYDROCHLORIDE
     Indication: Limb amputation
  13. ACETAMINOPHEN\TRAMADOL [Suspect]
     Active Substance: ACETAMINOPHEN\TRAMADOL
     Indication: Pain
     Dosage: UNK (37.5 MG TRAMADOL + 325 MG PARACETAMOL  )
     Route: 065
  14. ACETAMINOPHEN\TRAMADOL [Suspect]
     Active Substance: ACETAMINOPHEN\TRAMADOL
     Indication: Intervertebral disc disorder
  15. ACETAMINOPHEN\TRAMADOL [Suspect]
     Active Substance: ACETAMINOPHEN\TRAMADOL
     Indication: Inflammation
  16. RIFAMPIN [Suspect]
     Active Substance: RIFAMPIN
     Indication: Pain
     Dosage: 600 MILLIGRAM, ONCE A DAY
  17. RIFAMPIN [Suspect]
     Active Substance: RIFAMPIN
     Indication: Inflammation
  18. RIFAMPIN [Suspect]
     Active Substance: RIFAMPIN
     Indication: Intervertebral disc disorder
  19. CLOXACILLIN [Concomitant]
     Active Substance: CLOXACILLIN
     Indication: Pain
     Dosage: 1 GRAM, 0.25 DAY
  20. CLOXACILLIN [Concomitant]
     Active Substance: CLOXACILLIN
     Indication: Inflammation
  21. CLOXACILLIN [Concomitant]
     Active Substance: CLOXACILLIN
     Indication: Intervertebral disc disorder

REACTIONS (11)
  - Amputation stump pain [Not Recovered/Not Resolved]
  - Dysaesthesia [Not Recovered/Not Resolved]
  - Drug interaction [Not Recovered/Not Resolved]
  - Burning sensation [Unknown]
  - Condition aggravated [Unknown]
  - Inadequate analgesia [Unknown]
  - Hepatic enzyme increased [Unknown]
  - Medication error [Unknown]
  - Contraindicated product administered [Unknown]
  - Drug ineffective [Unknown]
  - Product prescribing error [Unknown]
